FAERS Safety Report 24779255 (Version 1)
Quarter: 2024Q4

REPORT INFORMATION
  Report Type: Spontaneous
  Country: US (occurrence: US)
  Receive Date: 20241226
  Receipt Date: 20241226
  Transmission Date: 20250115
  Serious: No
  Sender: ELI LILLY AND COMPANY
  Company Number: US-ELI_LILLY_AND_COMPANY-US202412016564

PATIENT
  Age: 56 Year
  Sex: Female

DRUGS (1)
  1. HUMALOG JUNIOR KWIKPEN [Suspect]
     Active Substance: INSULIN LISPRO
     Indication: Product used for unknown indication
     Dosage: UNK UNK, UNKNOWN
     Route: 065
     Dates: start: 20240301, end: 20240610

REACTIONS (3)
  - Arthralgia [Recovering/Resolving]
  - Sleep disorder due to a general medical condition [Unknown]
  - Allergic reaction to excipient [Unknown]

NARRATIVE: CASE EVENT DATE: 20240301
